FAERS Safety Report 9643518 (Version 1)
Quarter: 2013Q4

REPORT INFORMATION
  Report Type: Spontaneous
  Country: HR (occurrence: HR)
  Receive Date: 20131024
  Receipt Date: 20131024
  Transmission Date: 20140711
  Serious: Yes (Other)
  Sender: FDA-Public Use
  Company Number: HR-PFIZER INC-2013301461

PATIENT
  Age: 64 Year
  Sex: Female

DRUGS (1)
  1. DIFLUCAN [Suspect]
     Dosage: 150 MG, 1X/DAY (TOTAL DOSE)
     Route: 048
     Dates: start: 20130524, end: 20130524

REACTIONS (1)
  - Choking sensation [Recovered/Resolved]
